FAERS Safety Report 8043634-8 (Version None)
Quarter: 2012Q1

REPORT INFORMATION
  Report Type: 
  Country: None (occurrence: None)
  Receive Date: 20120112
  Receipt Date: 20120104
  Transmission Date: 20120608
  Serious: Yes (Other)
  Sender: FDA-Public Use
  Company Number: JP-BAXTER-2012BH000379

PATIENT

DRUGS (7)
  1. GAMMAGARD S/D [Suspect]
     Indication: POST PROCEDURAL INFECTION
     Route: 065
  2. BLOOD AND RELATED PRODUCTS [Suspect]
     Indication: TRANSFUSION
     Route: 065
     Dates: start: 20111001
  3. BLOOD AND RELATED PRODUCTS [Suspect]
     Indication: SURGERY
     Route: 065
     Dates: start: 20111001
  4. FIBRIN SEALANT, MFG UNSPECIFIED [Suspect]
     Indication: SURGERY
     Route: 065
     Dates: start: 20111001
  5. ALBUMIN (HUMAN) [Suspect]
     Indication: POST PROCEDURAL INFECTION
     Route: 065
  6. BUMINATE 5% [Suspect]
     Indication: SURGERY
     Route: 065
     Dates: start: 20111001
  7. BUMINATE 5% [Suspect]
     Route: 065
     Dates: start: 20111001

REACTIONS (4)
  - ALANINE AMINOTRANSFERASE INCREASED [None]
  - POST PROCEDURAL INFECTION [None]
  - HEPATITIS C ANTIBODY POSITIVE [None]
  - ASPARTATE AMINOTRANSFERASE INCREASED [None]
